FAERS Safety Report 4660039-8 (Version None)
Quarter: 2005Q2

REPORT INFORMATION
  Report Type: 
  Country: None (occurrence: None)
  Receive Date: 20050421
  Receipt Date: 20050209
  Transmission Date: 20051028
  Serious: Yes (Other)
  Sender: FDA-Public Use
  Company Number: 2005027785

PATIENT
  Age: 46 Year
  Sex: Female
  Weight: 68.0396 kg

DRUGS (2)
  1. RELPAX [Suspect]
     Indication: MIGRAINE
     Dosage: (40 MG)
     Dates: start: 20050202
  2. PROCHLORPERAZINE MALEATE [Concomitant]

REACTIONS (2)
  - CONFUSIONAL STATE [None]
  - VOMITING [None]
